FAERS Safety Report 6912557-7 (Version None)
Quarter: 2010Q3

REPORT INFORMATION
  Report Type: 
  Country: None (occurrence: None)
  Receive Date: 20100806
  Receipt Date: 20080716
  Transmission Date: 20110219
  Serious: No
  Sender: FDA-Public Use
  Company Number: US-PFIZER INC-2008059412

PATIENT
  Sex: Female

DRUGS (2)
  1. DILANTIN [Suspect]
  2. PHENOBARBITAL [Suspect]

REACTIONS (13)
  - BODY TEMPERATURE INCREASED [None]
  - BRONCHITIS [None]
  - CHEST PAIN [None]
  - COUGH [None]
  - DRUG HYPERSENSITIVITY [None]
  - EAR PAIN [None]
  - NASAL CONGESTION [None]
  - OBESITY [None]
  - OROPHARYNGEAL PAIN [None]
  - OTITIS EXTERNA [None]
  - OTITIS MEDIA [None]
  - RHINORRHOEA [None]
  - SLEEP DISORDER [None]
